FAERS Safety Report 26142654 (Version 1)
Quarter: 2025Q4

REPORT INFORMATION
  Report Type: Spontaneous
  Country: US (occurrence: None)
  Receive Date: 20251211
  Receipt Date: 20251211
  Transmission Date: 20260118
  Serious: No
  Sender: UMEDICA LABS
  Company Number: US-Umedica-000721

PATIENT
  Sex: Male

DRUGS (1)
  1. TADALAFIL [Suspect]
     Active Substance: TADALAFIL
     Indication: Product used for unknown indication
     Dosage: 3 NIGHTS A ROW

REACTIONS (2)
  - Product quality issue [Unknown]
  - Drug ineffective [Unknown]
